FAERS Safety Report 24779604 (Version 1)
Quarter: 2024Q4

REPORT INFORMATION
  Report Type: Report from Study
  Country: US (occurrence: US)
  Receive Date: 20241226
  Receipt Date: 20241226
  Transmission Date: 20250114
  Serious: Yes (Death)
  Sender: DAIICHI
  Company Number: US-DSJP-DSU-2024-100551

PATIENT
  Age: 71 Year
  Sex: Female

DRUGS (4)
  1. ENHERTU [Suspect]
     Active Substance: FAM-TRASTUZUMAB DERUXTECAN-NXKI
     Indication: Breast cancer female
     Dosage: 252.8 MG, ONCE EVERY 3 WK (OVER 90 MINS)
     Route: 042
     Dates: start: 20231017, end: 20231017
  2. ENHERTU [Suspect]
     Active Substance: FAM-TRASTUZUMAB DERUXTECAN-NXKI
     Dosage: 252.28 MG, (OVER 30 MINUTES ) ONCE EVERY 3 WK
     Route: 042
  3. ENHERTU [Suspect]
     Active Substance: FAM-TRASTUZUMAB DERUXTECAN-NXKI
     Dosage: 232.2 MG, ONCE EVERY 3 WK (OVER 30 MINUTES)
     Route: 042
     Dates: start: 20240105, end: 20240105
  4. ENHERTU [Suspect]
     Active Substance: FAM-TRASTUZUMAB DERUXTECAN-NXKI
     Dosage: 220 MG, ONCE EVERY 3 WK
     Route: 042
     Dates: start: 20241016, end: 20241016

REACTIONS (5)
  - Death [Fatal]
  - Weight decreased [Unknown]
  - Weight increased [Unknown]
  - Therapy change [Unknown]
  - Off label use [Not Recovered/Not Resolved]

NARRATIVE: CASE EVENT DATE: 20231201
